FAERS Safety Report 15506375 (Version 2)
Quarter: 2018Q4

REPORT INFORMATION
  Report Type: Report from Study
  Country: None (occurrence: US)
  Receive Date: 20181016
  Receipt Date: 20181113
  Transmission Date: 20190205
  Serious: Yes (Hospitalization)
  Sender: FDA-Public Use
  Company Number: US-ABBVIE-18K-163-2482762-00

PATIENT
  Age: 43 Year
  Sex: Female
  Weight: 93.98 kg

DRUGS (7)
  1. PREDNISONE. [Concomitant]
     Active Substance: PREDNISONE
     Indication: RHEUMATOID ARTHRITIS
  2. HUMIRA [Suspect]
     Active Substance: ADALIMUMAB
     Route: 058
     Dates: start: 20180324, end: 201803
  3. FOLIC ACID. [Concomitant]
     Active Substance: FOLIC ACID
     Indication: VITAMIN SUPPLEMENTATION
  4. PRILOSEC [Concomitant]
     Active Substance: OMEPRAZOLE MAGNESIUM
     Indication: PRODUCT USED FOR UNKNOWN INDICATION
  5. METHOTREXATE. [Concomitant]
     Active Substance: METHOTREXATE
     Indication: RHEUMATOID ARTHRITIS
  6. HUMIRA [Suspect]
     Active Substance: ADALIMUMAB
     Indication: RHEUMATOID ARTHRITIS
     Route: 058
     Dates: start: 2016, end: 2017
  7. HUMIRA [Suspect]
     Active Substance: ADALIMUMAB
     Route: 058
     Dates: start: 20170406, end: 201802

REACTIONS (19)
  - Pollakiuria [Recovered/Resolved]
  - Musculoskeletal stiffness [Unknown]
  - Back pain [Unknown]
  - Bacterial test positive [Unknown]
  - White blood cells urine positive [Unknown]
  - Mobility decreased [Unknown]
  - Feeling abnormal [Unknown]
  - Haemoglobin decreased [Unknown]
  - Drug effect variable [Unknown]
  - Kidney infection [Recovered/Resolved]
  - Gait inability [Unknown]
  - Drug level decreased [Unknown]
  - Dysstasia [Unknown]
  - Malaise [Unknown]
  - Pyelitis [Recovered/Resolved]
  - Joint swelling [Unknown]
  - Blood magnesium decreased [Unknown]
  - Red blood cells urine positive [Unknown]
  - Adverse drug reaction [Unknown]

NARRATIVE: CASE EVENT DATE: 2017
